FAERS Safety Report 4642689-8 (Version None)
Quarter: 2005Q2

REPORT INFORMATION
  Report Type: 
  Country: None (occurrence: None)
  Receive Date: 20050422
  Receipt Date: 20050411
  Transmission Date: 20051028
  Serious: Yes (Other)
  Sender: FDA-Public Use
  Company Number: CA-JNJFOC-20050403162

PATIENT
  Sex: Female
  Weight: 45.36 kg

DRUGS (4)
  1. TRI-CYCLEN 21 [Suspect]
     Indication: POLYCYSTIC OVARIES
     Route: 049
  2. DEMEROL [Concomitant]
     Indication: DRUG USE FOR UNKNOWN INDICATION
  3. CODEINE [Concomitant]
     Indication: DRUG USE FOR UNKNOWN INDICATION
  4. MORPHINE [Concomitant]
     Indication: DRUG USE FOR UNKNOWN INDICATION

REACTIONS (2)
  - ESCHERICHIA INFECTION [None]
  - MENOMETRORRHAGIA [None]
